FAERS Safety Report 7710196-1 (Version None)
Quarter: 2011Q3

REPORT INFORMATION
  Report Type: 
  Country: None (occurrence: None)
  Receive Date: 20110825
  Receipt Date: 20110819
  Transmission Date: 20111222
  Serious: Yes (Other)
  Sender: FDA-Public Use
  Company Number: US-CEPHALON-2011004378

PATIENT
  Sex: Female

DRUGS (4)
  1. PROVIGIL [Suspect]
     Indication: FIBROMYALGIA
     Route: 048
     Dates: start: 20110812, end: 20110813
  2. LUNESTA [Concomitant]
  3. LORTAB [Concomitant]
  4. PROZAC [Concomitant]

REACTIONS (2)
  - SWOLLEN TONGUE [None]
  - PHARYNGEAL OEDEMA [None]
